FAERS Safety Report 22321005 (Version 1)
Quarter: 2023Q2

REPORT INFORMATION
  Report Type: Spontaneous
  Country: US (occurrence: None)
  Receive Date: 20230512
  Receipt Date: 20230512
  Transmission Date: 20230721
  Serious: No
  Sender: FDA-Public Use
  Company Number: None

PATIENT
  Age: 74 Year
  Sex: Female

DRUGS (1)
  1. VOTRIENT [Suspect]
     Active Substance: PAZOPANIB HYDROCHLORIDE
     Indication: Chemotherapy
     Dosage: 800MG DAILY ORAL
     Route: 048
     Dates: start: 202304

REACTIONS (2)
  - Metastases to bone [None]
  - Jaw disorder [None]

NARRATIVE: CASE EVENT DATE: 20230512
